FAERS Safety Report 4459650-9 (Version None)
Quarter: 2004Q4

REPORT INFORMATION
  Report Type: 
  Country: None (occurrence: None)
  Receive Date: 20040915
  Receipt Date: 20031124
  Transmission Date: 20050328
  Serious: Yes (Other)
  Sender: FDA-Public Use
  Company Number: 2003115018

PATIENT
  Age: 55 Year
  Sex: Male
  Weight: 133.8111 kg

DRUGS (4)
  1. GLUCOTROL XL [Suspect]
     Indication: BLOOD GLUCOSE DECREASED
     Dosage: 10 MG (DAILY), ORAL
     Route: 048
     Dates: start: 19990101
  2. SCOTCH (ETHANOL) [Suspect]
     Indication: ILL-DEFINED DISORDER
     Dosage: ORAL
     Route: 048
     Dates: start: 20031001
  3. ATORVASTATIN (ATORVASTATIN) [Concomitant]
  4. HYDROCHLOROTHIAZIDE [Concomitant]

REACTIONS (8)
  - BLOOD GLUCOSE INCREASED [None]
  - DISCOMFORT [None]
  - DIZZINESS [None]
  - FEELING ABNORMAL [None]
  - HYPOGLYCAEMIA [None]
  - NAUSEA [None]
  - SYNCOPE [None]
  - WEIGHT DECREASED [None]
